FAERS Safety Report 5851462-4 (Version None)
Quarter: 2008Q3

REPORT INFORMATION
  Report Type: 
  Country: None (occurrence: None)
  Receive Date: 20080820
  Receipt Date: 20080812
  Transmission Date: 20090109
  Serious: Yes (Hospitalization)
  Sender: FDA-Public Use
  Company Number: GB-JNJFOC-20080802844

PATIENT
  Age: 56 Year
  Sex: Female

DRUGS (7)
  1. DIPHENHYDRAMINE HCL [Suspect]
     Indication: INSOMNIA
     Dosage: 50-1500 MG A DAY INITIATED APPROXIMATELY 5 YEARS EARLIER
  2. LORAZEPAM [Concomitant]
     Indication: INSOMNIA
  3. TEMAZEPAM [Concomitant]
     Indication: INSOMNIA
  4. VENLAFAXINE XL [Concomitant]
     Indication: DEPRESSION
  5. OLANZAPINE [Concomitant]
     Indication: SCHIZOPHRENIA
  6. FLUPENTIXOL [Concomitant]
     Indication: SCHIZOPHRENIA
     Route: 030
  7. UNSPECIFIED MEDICATIONS [Concomitant]

REACTIONS (7)
  - ACCIDENTAL OVERDOSE [None]
  - CONVULSION [None]
  - DEPENDENCE [None]
  - INSOMNIA [None]
  - LOSS OF CONSCIOUSNESS [None]
  - MEMORY IMPAIRMENT [None]
  - WITHDRAWAL SYNDROME [None]
